FAERS Safety Report 19506237 (Version 4)
Quarter: 2021Q4

REPORT INFORMATION
  Report Type: Spontaneous
  Country: US (occurrence: US)
  Receive Date: 20210708
  Receipt Date: 20211202
  Transmission Date: 20220303
  Serious: Yes (Hospitalization, Other)
  Sender: FDA-Public Use
  Company Number: US-SA-SAC20210707000750

PATIENT
  Age: 72 Year
  Sex: Male

DRUGS (1)
  1. DUPIXENT [Suspect]
     Active Substance: DUPILUMAB
     Indication: Dermatitis atopic
     Dosage: 300 MG, QOW
     Route: 058
     Dates: start: 202012

REACTIONS (6)
  - Cerebrovascular accident [Unknown]
  - Heart rate abnormal [Unknown]
  - Condition aggravated [Unknown]
  - Liver disorder [Unknown]
  - Fatigue [Unknown]
  - Product dose omission issue [Unknown]
